FAERS Safety Report 18232896 (Version 1)
Quarter: 2020Q3

REPORT INFORMATION
  Report Type: Spontaneous
  Country: CH (occurrence: CH)
  Receive Date: 20200904
  Receipt Date: 20200904
  Transmission Date: 20201103
  Serious: Yes (Other)
  Sender: FDA-Public Use
  Company Number: CH-PFIZER INC-2020338587

PATIENT
  Age: 57 Year
  Sex: Male

DRUGS (2)
  1. TOREM [Suspect]
     Active Substance: TORSEMIDE
     Indication: BLOOD PRESSURE ABNORMAL
     Dosage: UNK
     Dates: end: 2020
  2. ALDACTONE [Suspect]
     Active Substance: SPIRONOLACTONE
     Indication: BLOOD PRESSURE ABNORMAL
     Dosage: UNK (FOR A LONG TIME (OVER YEARS))
     Dates: end: 2020

REACTIONS (3)
  - Tremor [Unknown]
  - Pulmonary embolism [Unknown]
  - Fine motor skill dysfunction [Unknown]

NARRATIVE: CASE EVENT DATE: 202006
